FAERS Safety Report 6215688-2 (Version None)
Quarter: 2009Q2

REPORT INFORMATION
  Report Type: 
  Country: None (occurrence: None)
  Receive Date: 20090603
  Receipt Date: 20090603
  Transmission Date: 20091009
  Serious: No
  Sender: FDA-Public Use
  Company Number: None

PATIENT
  Age: 68 Year
  Sex: Female
  Weight: 62.1428 kg

DRUGS (1)
  1. ACTONEL [Suspect]
     Indication: OSTEOPENIA
     Dosage: 150 MG 1 EVERY MONTH TAKE 1 TABLET BY MOUTH EVERY MONTH
     Route: 048
     Dates: start: 20090508

REACTIONS (7)
  - ARTHRALGIA [None]
  - COLITIS [None]
  - FATIGUE [None]
  - LETHARGY [None]
  - MUSCULOSKELETAL STIFFNESS [None]
  - NAUSEA [None]
  - VOMITING [None]
